FAERS Safety Report 21909118 (Version 1)
Quarter: 2023Q1

REPORT INFORMATION
  Report Type: Other
  Country: US (occurrence: US)
  Receive Date: 20230125
  Receipt Date: 20230125
  Transmission Date: 20230417
  Serious: Yes (Death, Hospitalization)
  Sender: FDA-Public Use
  Company Number: US-TRAVERE-2022TVT00354

PATIENT
  Age: 4 Month
  Sex: Male

DRUGS (1)
  1. CHOLBAM [Suspect]
     Active Substance: CHOLIC ACID
     Indication: Cerebrohepatorenal syndrome
     Dosage: 50 MG / QD
     Route: 048
     Dates: start: 20211203

REACTIONS (4)
  - Death [Fatal]
  - Respiratory disorder [Unknown]
  - Gastrointestinal disorder [Unknown]
  - Feeding intolerance [Unknown]

NARRATIVE: CASE EVENT DATE: 20220301
